FAERS Safety Report 6043036-X (Version None)
Quarter: 2009Q1

REPORT INFORMATION
  Report Type: 
  Country: None (occurrence: None)
  Receive Date: 20090119
  Receipt Date: 20090112
  Transmission Date: 20090719
  Serious: Yes (Other)
  Sender: FDA-Public Use
  Company Number: PHHY2008DE29836

PATIENT
  Sex: Female
  Weight: 57 kg

DRUGS (1)
  1. IMMUNOSPORIN [Suspect]
     Indication: RHEUMATOID ARTHRITIS
     Dosage: 125 MG/DAY
     Route: 048
     Dates: start: 20080808, end: 20080814

REACTIONS (5)
  - BLOOD PRESSURE SYSTOLIC INCREASED [None]
  - GENERAL PHYSICAL HEALTH DETERIORATION [None]
  - HYPERTENSIVE CRISIS [None]
  - MALAISE [None]
  - NAUSEA [None]
